FAERS Safety Report 19078033 (Version 1)
Quarter: 2021Q1

REPORT INFORMATION
  Report Type: Spontaneous
  Country: US (occurrence: US)
  Receive Date: 20210331
  Receipt Date: 20210331
  Transmission Date: 20210420
  Serious: No
  Sender: FDA-Public Use
  Company Number: None

PATIENT
  Age: 30 Year
  Sex: Female
  Weight: 80.29 kg

DRUGS (1)
  1. CIPROFLOXACIN (CIPROFLOXACIN HCL 10MG/ML INJ IV) [Suspect]
     Active Substance: CIPROFLOXACIN HYDROCHLORIDE
     Indication: SURGERY
     Route: 042
     Dates: start: 20210320, end: 20210320

REACTIONS (4)
  - Respiratory depression [None]
  - Rash [None]
  - Pruritus [None]
  - Dyspnoea [None]

NARRATIVE: CASE EVENT DATE: 20210320
